FAERS Safety Report 9030299 (Version 2)
Quarter: 2013Q1

REPORT INFORMATION
  Report Type: Spontaneous
  Country: JP (occurrence: JP)
  Receive Date: 20130122
  Receipt Date: 20130131
  Transmission Date: 20140127
  Serious: Yes (Hospitalization, Other)
  Sender: FDA-Public Use
  Company Number: JP-PFIZER INC-2013018593

PATIENT
  Age: 11 Month
  Sex: Male
  Weight: 9.91 kg

DRUGS (10)
  1. CORTRIL [Suspect]
     Indication: HISTIOCYTOSIS HAEMATOPHAGIC
     Dosage: 10 MG DAILY IN 3 DIVIDED DOSES
     Route: 048
     Dates: start: 20121107
  2. CICLOSPORIN [Interacting]
     Indication: HISTIOCYTOSIS HAEMATOPHAGIC
     Dosage: 17 MG DAILY
     Route: 048
     Dates: start: 20120403, end: 20121125
  3. ITRIZOLE [Interacting]
     Indication: IMMUNODEFICIENCY
     Dosage: 40 MG, 1X/DAY
     Route: 048
     Dates: start: 20121001, end: 20121125
  4. MEVALOTIN [Interacting]
     Indication: HYPERLIPIDAEMIA
     Dosage: 1 MG, 1X/DAY
     Route: 048
     Dates: start: 20120802
  5. BIOTIN [Concomitant]
     Indication: VITAMIN SUPPLEMENTATION
     Dosage: 0.5 MG, 1X/DAY
     Route: 048
     Dates: start: 20120214
  6. GASTER [Concomitant]
     Indication: PROPHYLAXIS
     Dosage: 4 MG DAILY IN 2 DIVIDED DOSES
     Route: 048
     Dates: start: 20120424, end: 20121201
  7. L-CARTIN [Concomitant]
     Indication: PROPHYLAXIS
     Dosage: 100 MG, 1X/DAY
     Dates: start: 20120426
  8. BAKTAR [Concomitant]
     Indication: PROPHYLAXIS
     Dosage: 0.7 G DAILY IN 2 DIVIDED DOSES
     Route: 048
     Dates: start: 20120428
  9. ETIZOLAM [Concomitant]
     Indication: MUSCLE TIGHTNESS
     Dosage: 0.4 MG DAILY IN 3 DIVIDED DOSES
     Route: 048
     Dates: start: 20120517
  10. GASMOTIN [Concomitant]
     Indication: GASTROOESOPHAGEAL REFLUX DISEASE
     Dosage: 2 MG, 1X/DAY
     Route: 048
     Dates: start: 20120622

REACTIONS (4)
  - Drug interaction [Recovering/Resolving]
  - Renal impairment [Recovering/Resolving]
  - Pneumonia respiratory syncytial viral [Recovering/Resolving]
  - Drug level increased [Recovering/Resolving]
